FAERS Safety Report 16719678 (Version 1)
Quarter: 2019Q3

REPORT INFORMATION
  Report Type: Spontaneous
  Country: SG (occurrence: SG)
  Receive Date: 20190820
  Receipt Date: 20190820
  Transmission Date: 20191005
  Serious: Yes (Hospitalization)
  Sender: FDA-Public Use
  Company Number: SG-PFIZER INC-2019350431

PATIENT
  Age: 70 Year
  Sex: Female

DRUGS (14)
  1. FERROUS FUMARATE [Concomitant]
     Active Substance: FERROUS FUMARATE
     Dosage: 200 MG, 2X/DAY (BD)
  2. CHOLECALCIFEROL [Concomitant]
     Active Substance: CHOLECALCIFEROL
     Dosage: 1000 IU, 1X/DAY (OM)
  3. CLARITHROMYCIN. [Interacting]
     Active Substance: CLARITHROMYCIN
     Indication: PYREXIA
  4. IRON [Concomitant]
     Active Substance: IRON
     Dosage: 100 MG, UNK (EVERY FORTNIGHT, INJECTION)
  5. GLIPIZIDE. [Suspect]
     Active Substance: GLIPIZIDE
     Indication: DIABETES MELLITUS
     Dosage: UNK
     Route: 048
  6. CLARITHROMYCIN. [Interacting]
     Active Substance: CLARITHROMYCIN
     Indication: COUGH
     Dosage: PRESCRIBED FOR FIVE DAYS
  7. ACETYLSALICYLIC ACID [Concomitant]
     Active Substance: ASPIRIN
     Dosage: 100 MG, 1X/DAY (OM)
  8. RECORMON N [Concomitant]
     Dosage: 4000 IU, UNK (THRICE A WEEK)
  9. EXEMESTANE. [Concomitant]
     Active Substance: EXEMESTANE
     Indication: BREAST CANCER METASTATIC
     Dosage: 25 MG, 1X/DAY (OM)
  10. CALCIUM CARBONATE. [Concomitant]
     Active Substance: CALCIUM CARBONATE
     Dosage: 1.25 G, 2X/DAY (PRE-LUNCH AND PRE-DINNER)
  11. AMLODIPINE [Concomitant]
     Active Substance: AMLODIPINE BESYLATE
     Dosage: 10 MG, 1X/DAY  (OM)
  12. ATORVASTATIN [Concomitant]
     Active Substance: ATORVASTATIN
     Dosage: 40 MG, 1X/DAY (ON)
  13. OMEPRAZOLE. [Concomitant]
     Active Substance: OMEPRAZOLE
     Dosage: 20 MG, 1X/DAY (OM)
  14. LOSARTAN. [Concomitant]
     Active Substance: LOSARTAN
     Dosage: 75 MG, 1X/DAY (OM)

REACTIONS (2)
  - Drug interaction [Unknown]
  - Hypoglycaemia [Recovered/Resolved]
